FAERS Safety Report 18455497 (Version 1)
Quarter: 2020Q4

REPORT INFORMATION
  Report Type: Spontaneous
  Country: US (occurrence: US)
  Receive Date: 20201103
  Receipt Date: 20201103
  Transmission Date: 20210114
  Serious: No
  Sender: FDA-Public Use
  Company Number: US-GLENMARK PHARMACEUTICALS-2020GMK050079

PATIENT

DRUGS (1)
  1. TACROZ OINTMENT 0.1% [Suspect]
     Active Substance: TACROLIMUS
     Indication: ECZEMA EYELIDS
     Dosage: UNK
     Route: 061

REACTIONS (3)
  - Application site warmth [Unknown]
  - Photophobia [Unknown]
  - Accidental exposure to product [Unknown]
